FAERS Safety Report 9505837 (Version 1)
Quarter: 2013Q1

REPORT INFORMATION
  Report Type: Spontaneous
  Country: US (occurrence: None)
  Receive Date: 20130226
  Receipt Date: 20130226
  Transmission Date: 20140127
  Serious: Yes (Other)
  Sender: FDA-Public Use
  Company Number: PHEH2012US007648

PATIENT
  Age: 7 Year
  Sex: Female
  Weight: 51.7 kg

DRUGS (5)
  1. TOBI [Suspect]
     Route: 055
     Dates: start: 200810
  2. CREON [Concomitant]
  3. RANITIDINE (RANITIDINE) [Concomitant]
  4. XOPENEX HFA [Concomitant]
  5. PULMOZYME [Concomitant]

REACTIONS (1)
  - Bronchospasm [None]
